FAERS Safety Report 11551970 (Version 1)
Quarter: 2015Q3

REPORT INFORMATION
  Report Type: Spontaneous
  Country: US (occurrence: US)
  Receive Date: 20150903
  Receipt Date: 20150903
  Transmission Date: 20151125
  Serious: No
  Sender: FDA-Public Use
  Company Number: US-ELI_LILLY_AND_COMPANY-US201005007768

PATIENT
  Sex: Male

DRUGS (3)
  1. HUMALOG [Suspect]
     Active Substance: INSULIN LISPRO
     Indication: TYPE 2 DIABETES MELLITUS
     Dosage: 6 U, 2/D
     Dates: start: 20100506
  2. HUMALOG [Suspect]
     Active Substance: INSULIN LISPRO
     Dosage: 11 U, EACH EVENING
  3. NOVOLOG [Concomitant]
     Active Substance: INSULIN ASPART
     Indication: TYPE 2 DIABETES MELLITUS

REACTIONS (3)
  - Tremor [Unknown]
  - Nervousness [Unknown]
  - Incorrect dose administered [Unknown]
